FAERS Safety Report 8887038 (Version 1)
Quarter: 2012Q4

REPORT INFORMATION
  Report Type: 
  Country: US (occurrence: US)
  Receive Date: 20121105
  Receipt Date: 20121105
  Transmission Date: 20130627
  Serious: Yes (Other)
  Sender: FDA-Public Use
  Company Number: US-JNJFOC-20120901076

PATIENT
  Sex: Female
  Weight: 77.11 kg

DRUGS (4)
  1. XARELTO [Suspect]
     Indication: CEREBROVASCULAR ACCIDENT PROPHYLAXIS
     Route: 048
     Dates: start: 20120705
  2. XARELTO [Suspect]
     Indication: ATRIAL FIBRILLATION
     Route: 048
     Dates: start: 20120705
  3. CARDIZEM [Concomitant]
     Indication: BLOOD PRESSURE
     Route: 048
     Dates: start: 20120705
  4. TOPROL [Concomitant]
     Indication: BLOOD PRESSURE
     Route: 048

REACTIONS (4)
  - Blood blister [Unknown]
  - Contusion [Unknown]
  - Haematuria [Not Recovered/Not Resolved]
  - Nephrolithiasis [Unknown]
